FAERS Safety Report 10916274 (Version 1)
Quarter: 2015Q1

REPORT INFORMATION
  Report Type: Spontaneous
  Country: None (occurrence: None)
  Receive Date: 20150312
  Receipt Date: 20150312
  Transmission Date: 20150721
  Serious: Yes (Disabling)
  Sender: FDA-Public Use
  Company Number: None

PATIENT
  Age: 11 Year
  Sex: Male
  Weight: 39.46 kg

DRUGS (4)
  1. ABILIFY [Suspect]
     Active Substance: ARIPIPRAZOLE
     Indication: AFFECTIVE DISORDER
     Route: 048
     Dates: start: 20111208, end: 20150126
  2. ABILIFY [Suspect]
     Active Substance: ARIPIPRAZOLE
     Indication: ANGER
     Route: 048
     Dates: start: 20111208, end: 20150126
  3. VITAMIN E [Concomitant]
     Active Substance: .ALPHA.-TOCOPHEROL
  4. ABILIFY [Suspect]
     Active Substance: ARIPIPRAZOLE
     Indication: ABNORMAL BEHAVIOUR
     Route: 048
     Dates: start: 20111208, end: 20150126

REACTIONS (2)
  - Dyskinesia [None]
  - Tardive dyskinesia [None]

NARRATIVE: CASE EVENT DATE: 20150121
